FAERS Safety Report 9839516 (Version 2)
Quarter: 2014Q1

REPORT INFORMATION
  Report Type: Report from Study
  Country: US (occurrence: US)
  Receive Date: 20140124
  Receipt Date: 20140220
  Transmission Date: 20141002
  Serious: Yes (Hospitalization)
  Sender: FDA-Public Use
  Company Number: US-ROCHE-1334492

PATIENT
  Age: 59 Year
  Sex: Female

DRUGS (4)
  1. XOLAIR [Suspect]
     Indication: ASTHMA
     Route: 058
  2. QVAR [Concomitant]
  3. GABAPENTIN [Concomitant]
  4. CROMOLYN [Concomitant]

REACTIONS (8)
  - Knee arthroplasty [Unknown]
  - Cholecystectomy [Unknown]
  - Chest pain [Unknown]
  - Diaphragmatic paralysis [Unknown]
  - Secretion discharge [Unknown]
  - Wheezing [Unknown]
  - Asthma [Unknown]
  - Asthma [Unknown]
